FAERS Safety Report 24531692 (Version 1)
Quarter: 2024Q4

REPORT INFORMATION
  Report Type: Spontaneous
  Country: LB (occurrence: LB)
  Receive Date: 20241022
  Receipt Date: 20241022
  Transmission Date: 20250115
  Serious: Yes (Other)
  Sender: JUBILANT
  Company Number: LB-JUBILANT CADISTA PHARMACEUTICALS-2024LB001497

PATIENT
  Age: 3 Decade
  Sex: Male

DRUGS (1)
  1. PAROXETINE [Suspect]
     Active Substance: PAROXETINE
     Indication: Generalised anxiety disorder
     Dosage: 20 MG, ONCE PER DAY, FIRST COURSE

REACTIONS (2)
  - Mucosal prolapse syndrome [Recovered/Resolved]
  - Rectal haemorrhage [Recovered/Resolved]
